FAERS Safety Report 7636071-9 (Version None)
Quarter: 2011Q3

REPORT INFORMATION
  Report Type: 
  Country: None (occurrence: None)
  Receive Date: 20110719
  Receipt Date: 20110706
  Transmission Date: 20111222
  Serious: Yes (Hospitalization)
  Sender: FDA-Public Use
  Company Number: 2011CP000113

PATIENT
  Age: 45 Year
  Sex: Female

DRUGS (5)
  1. ENOXAPARIN SODIUM [Concomitant]
  2. MORPHINE [Suspect]
     Indication: ANALGESIC THERAPY
     Dosage: 1 DOSAGE FORM; TOTAL
     Dates: start: 20110512, end: 20110512
  3. TORADOL [Suspect]
     Indication: ANALGESIC THERAPY
     Dosage: 901 MG; 1 DAY; IV
     Route: 042
     Dates: start: 20110512, end: 20110513
  4. AUGMENTIN '125' [Suspect]
     Indication: ANALGESIC THERAPY
     Dosage: 6.6 GM; 1 DAY; IV
     Route: 042
     Dates: start: 20110512
  5. ACETAMINOPHEN [Suspect]
     Indication: ANALGESIC THERAPY
     Dosage: 3 GM; IV
     Route: 042
     Dates: start: 20110512, end: 20110513

REACTIONS (2)
  - RENAL FAILURE ACUTE [None]
  - HAEMATURIA [None]
